FAERS Safety Report 7016654-X (Version None)
Quarter: 2010Q3

REPORT INFORMATION
  Report Type: 
  Country: None (occurrence: None)
  Receive Date: 20100923
  Receipt Date: 20100917
  Transmission Date: 20110219
  Serious: Yes (Other)
  Sender: FDA-Public Use
  Company Number: 2010SP046799

PATIENT
  Age: 19 Year
  Sex: Female

DRUGS (5)
  1. DESLORATADINE [Suspect]
     Indication: PRODUCT USED FOR UNKNOWN INDICATION
     Dosage: PRN
  2. ABILIFY [Suspect]
     Indication: SCHIZOPHRENIA, PARANOID TYPE
     Dosage: 30 MG PO; 25 MG PO
     Route: 048
     Dates: start: 20100130, end: 20100601
  3. ABILIFY [Suspect]
     Indication: SCHIZOPHRENIA, PARANOID TYPE
     Dosage: 30 MG PO; 25 MG PO
     Route: 048
     Dates: start: 20100601
  4. VENLAFAXINE [Concomitant]
  5. HYDROCHLORIDE [Concomitant]

REACTIONS (5)
  - ANXIETY [None]
  - DEPRESSION [None]
  - FATIGUE [None]
  - FEELING ABNORMAL [None]
  - SEDATION [None]
